FAERS Safety Report 13098332 (Version 1)
Quarter: 2017Q1

REPORT INFORMATION
  Report Type: Spontaneous
  Country: SE (occurrence: SE)
  Receive Date: 20170109
  Receipt Date: 20170109
  Transmission Date: 20170428
  Serious: Yes (Other)
  Sender: FDA-Public Use
  Company Number: SE-TEVA-724305ISR

PATIENT
  Sex: Female

DRUGS (1)
  1. SERTRALINE ACTAVIS [Suspect]
     Active Substance: SERTRALINE HYDROCHLORIDE
     Route: 048
     Dates: end: 20161204

REACTIONS (13)
  - Disturbance in attention [Unknown]
  - Anxiety [Unknown]
  - Derealisation [Unknown]
  - Economic problem [Unknown]
  - Panic attack [Unknown]
  - Balance disorder [Unknown]
  - Activities of daily living impaired [Unknown]
  - Compulsive shopping [Unknown]
  - Feeling abnormal [Unknown]
  - Mental disorder [Unknown]
  - Negative thoughts [Unknown]
  - Sleep disorder [Unknown]
  - Drug ineffective [Unknown]
